FAERS Safety Report 16788973 (Version 1)
Quarter: 2019Q3

REPORT INFORMATION
  Report Type: Spontaneous
  Country: NL (occurrence: NL)
  Receive Date: 20190910
  Receipt Date: 20190910
  Transmission Date: 20191005
  Serious: Yes (Life-Threatening, Hospitalization)
  Sender: FDA-Public Use
  Company Number: NL-TEVA-2019-NL-1103685

PATIENT
  Age: 73 Year
  Sex: Female
  Weight: 65 kg

DRUGS (4)
  1. LOSARTAN 50 MG [Suspect]
     Active Substance: LOSARTAN
     Indication: LEFT VENTRICULAR HYPERTROPHY
  2. METOPROLOL. [Concomitant]
     Active Substance: METOPROLOL
  3. LOSARTAN 50 MG [Suspect]
     Active Substance: LOSARTAN
     Indication: HYPERTENSION
     Dosage: 1 X 50 MG/ 225 DAYS
     Route: 065
     Dates: start: 20181224, end: 20190806
  4. ATORVASTATINE [Concomitant]
     Active Substance: ATORVASTATIN

REACTIONS (4)
  - Confusional state [Recovered/Resolved]
  - Feeling guilty [Recovered/Resolved]
  - Hallucination, visual [Recovered/Resolved]
  - Delirium [Recovered/Resolved]

NARRATIVE: CASE EVENT DATE: 201901
